FAERS Safety Report 17015331 (Version 1)
Quarter: 2019Q4

REPORT INFORMATION
  Report Type: Spontaneous
  Country: US (occurrence: US)
  Receive Date: 20191108
  Receipt Date: 20191108
  Transmission Date: 20200122
  Serious: Yes (Other)
  Sender: FDA-Public Use
  Company Number: None

PATIENT
  Age: 73 Year
  Sex: Female

DRUGS (11)
  1. HYDROCO/APAP [Concomitant]
     Active Substance: ACETAMINOPHEN\HYDROCODONE
  2. ONDANSETRON [Concomitant]
     Active Substance: ONDANSETRON
  3. HUMALOG [Concomitant]
     Active Substance: INSULIN LISPRO
  4. PLAQUENIL [Concomitant]
     Active Substance: HYDROXYCHLOROQUINE SULFATE
  5. LANTUS [Concomitant]
     Active Substance: INSULIN GLARGINE
  6. VITAMIN B12 [Concomitant]
     Active Substance: CYANOCOBALAMIN
  7. BD PEN [Concomitant]
  8. BENLYSTA [Suspect]
     Active Substance: BELIMUMAB
     Indication: SYSTEMIC LUPUS ERYTHEMATOSUS
     Dosage: ?          OTHER FREQUENCY:Q7DAYS;?
     Route: 058
     Dates: start: 20180808
  9. FREESTYLE [Concomitant]
  10. FLUCONAZOLE. [Concomitant]
     Active Substance: FLUCONAZOLE
  11. MYFORTIC [Concomitant]
     Active Substance: MYCOPHENOLATE SODIUM

REACTIONS (2)
  - Therapy cessation [None]
  - Shoulder operation [None]

NARRATIVE: CASE EVENT DATE: 20191107
